FAERS Safety Report 22600819 (Version 8)
Quarter: 2024Q2

REPORT INFORMATION
  Report Type: Report from Study
  Country: US (occurrence: US)
  Receive Date: 20230614
  Receipt Date: 20240611
  Transmission Date: 20240716
  Serious: Yes (Other)
  Sender: FDA-Public Use
  Company Number: US-TAKEDA-2023TUS034603

PATIENT
  Age: 66 Year
  Sex: Female

DRUGS (2)
  1. HUMAN IMMUNOGLOBULIN G [Suspect]
     Active Substance: HUMAN IMMUNOGLOBULIN G
     Indication: Primary immunodeficiency syndrome
     Dosage: UNK, 1/WEEK
     Route: 065
     Dates: start: 2020
  2. HUMAN IMMUNOGLOBULIN G [Suspect]
     Active Substance: HUMAN IMMUNOGLOBULIN G
     Indication: Selective polysaccharide antibody deficiency
     Dosage: 10 GRAM, 1/WEEK
     Route: 058

REACTIONS (14)
  - Plasma cell myeloma [Unknown]
  - Waldenstrom^s macroglobulinaemia [Unknown]
  - Pneumonia [Unknown]
  - Anaphylactic reaction [Recovered/Resolved]
  - Sinus congestion [Unknown]
  - Sinusitis [Unknown]
  - Illness [Unknown]
  - Exposure to fungus [Unknown]
  - Salivary gland calculus [Recovered/Resolved]
  - Insurance issue [Unknown]
  - Bronchitis chronic [Recovering/Resolving]
  - Nasopharyngitis [Unknown]
  - Bronchitis [Unknown]
  - Inappropriate schedule of product administration [Unknown]

NARRATIVE: CASE EVENT DATE: 20230705
